FAERS Safety Report 26083640 (Version 2)
Quarter: 2025Q4

REPORT INFORMATION
  Report Type: Spontaneous
  Country: US (occurrence: US)
  Receive Date: 20251124
  Receipt Date: 20251224
  Transmission Date: 20260117
  Serious: No
  Sender: PFIZER
  Company Number: US-PFIZER INC-202500158912

PATIENT
  Age: 7 Year
  Sex: Male
  Weight: 25.85 kg

DRUGS (3)
  1. GENOTROPIN [Suspect]
     Active Substance: SOMATROPIN
     Indication: Short stature
     Dosage: 1.0 MG
  2. GENOTROPIN [Suspect]
     Active Substance: SOMATROPIN
     Indication: Cystinosis
     Dosage: 1.0 MG, DAILY, SUBCUTANEOUS MOSTLY IN LEGS UPPER THIGH
     Route: 058
     Dates: start: 2023
  3. GENOTROPIN [Suspect]
     Active Substance: SOMATROPIN
     Indication: Failure to thrive

REACTIONS (3)
  - Device breakage [Unknown]
  - Device leakage [Unknown]
  - Drug dose omission by device [Unknown]

NARRATIVE: CASE EVENT DATE: 20251101
